FAERS Safety Report 7178528-3 (Version None)
Quarter: 2010Q4

REPORT INFORMATION
  Report Type: 
  Country: None (occurrence: None)
  Receive Date: 20101221
  Receipt Date: 20101208
  Transmission Date: 20110411
  Serious: Yes (Hospitalization)
  Sender: FDA-Public Use
  Company Number: JP-AMGEN-JPNSP2010006217

PATIENT

DRUGS (4)
  1. ENBREL [Suspect]
     Indication: RHEUMATOID ARTHRITIS
     Dosage: UNK
     Route: 058
     Dates: start: 20070701, end: 20100701
  2. PREDNISOLONE [Concomitant]
     Dosage: UNK
  3. METHOTREXATE [Concomitant]
     Dosage: 4 MG, QWK
  4. LOXOPROFEN [Concomitant]
     Dosage: UNK

REACTIONS (2)
  - HISTIOCYTOSIS HAEMATOPHAGIC [None]
  - SYSTEMIC LUPUS ERYTHEMATOSUS [None]
